FAERS Safety Report 7240587-7 (Version None)
Quarter: 2011Q1

REPORT INFORMATION
  Report Type: 
  Country: None (occurrence: None)
  Receive Date: 20110120
  Receipt Date: 20110120
  Transmission Date: 20110831
  Serious: Yes (Hospitalization)
  Sender: FDA-Public Use
  Company Number: None

PATIENT
  Age: 82 Year
  Sex: Female
  Weight: 102.5129 kg

DRUGS (1)
  1. PREDNISONE TAB [Suspect]
     Indication: PLATELET COUNT DECREASED
     Dosage: 80 MG PER DAY PILLS
     Dates: start: 20101211, end: 20101223

REACTIONS (5)
  - AMNESIA [None]
  - FEELING ABNORMAL [None]
  - VISUAL ACUITY REDUCED [None]
  - PLATELET COUNT DECREASED [None]
  - CONDITION AGGRAVATED [None]
